FAERS Safety Report 7231447-6 (Version None)
Quarter: 2011Q1

REPORT INFORMATION
  Report Type: 
  Country: None (occurrence: None)
  Receive Date: 20110118
  Receipt Date: 20110118
  Transmission Date: 20110831
  Serious: Yes (Death)
  Sender: FDA-Public Use
  Company Number: JP-PFIZER INC-2009305258

PATIENT
  Age: 58 Year
  Sex: Male
  Weight: 69.6 kg

DRUGS (7)
  1. LASIX [Concomitant]
     Indication: PROPHYLAXIS
     Dosage: UNK
     Route: 048
     Dates: start: 20090501
  2. CEPHARANTHIN [Concomitant]
     Indication: NEUTROPENIA
     Dosage: UNK
     Route: 048
     Dates: start: 20090903
  3. ALLOPURINOL [Concomitant]
     Indication: HYPERURICAEMIA
     Dosage: UNK
     Route: 048
     Dates: start: 20090201
  4. SUNITINIB MALATE [Suspect]
     Indication: HEPATIC NEOPLASM MALIGNANT
     Dosage: 25 MG, 1X/DAY
     Route: 048
     Dates: start: 20090521, end: 20091130
  5. LAFUTIDINE [Concomitant]
     Indication: DUODENITIS
     Dosage: UNK
     Route: 048
     Dates: start: 20090201
  6. SELBEX [Concomitant]
     Indication: PROPHYLAXIS AGAINST GASTROINTESTINAL ULCER
     Dosage: UNK
     Route: 048
     Dates: start: 20090618
  7. ALDACTONE [Concomitant]
     Indication: PROPHYLAXIS
     Dosage: UNK
     Route: 048
     Dates: start: 20090501

REACTIONS (2)
  - PLATELET COUNT DECREASED [None]
  - OESOPHAGEAL VARICES HAEMORRHAGE [None]
